FAERS Safety Report 8247724-6 (Version None)
Quarter: 2012Q1

REPORT INFORMATION
  Report Type: 
  Country: None (occurrence: None)
  Receive Date: 20120330
  Receipt Date: 20110624
  Transmission Date: 20120608
  Serious: Yes (Hospitalization)
  Sender: FDA-Public Use
  Company Number: US-GLAXOSMITHKLINE-A0935992A

PATIENT
  Age: 45 Year
  Sex: Male

DRUGS (2)
  1. AVANDAMET [Suspect]
     Indication: DIABETES MELLITUS
     Route: 048
     Dates: start: 20000101, end: 20030101
  2. AVANDIA [Suspect]
     Indication: DIABETES MELLITUS
     Route: 048
     Dates: start: 20000101, end: 20030101

REACTIONS (2)
  - PALPITATIONS [None]
  - HYPERTENSION [None]
